FAERS Safety Report 8687911 (Version 3)
Quarter: 2012Q4

REPORT INFORMATION
  Report Type: Report from Study
  Country: CA (occurrence: CA)
  Receive Date: 20120727
  Receipt Date: 20121109
  Transmission Date: 20130627
  Serious: Yes (Death, Life-Threatening, Hospitalization)
  Sender: FDA-Public Use
  Company Number: CA-TEVA-350581USA

PATIENT
  Age: 49 Year
  Sex: Male
  Weight: 106.9 kg

DRUGS (40)
  1. TREANDA [Suspect]
     Indication: NON-HODGKIN^S LYMPHOMA UNSPECIFIED HISTOLOGY INDOLENT
     Dosage: Cycle 1
     Route: 042
     Dates: start: 20120706
  2. COMBIVENT [Concomitant]
     Indication: COUGH
     Dosage: 10 ml Daily;
     Route: 048
     Dates: start: 20120704
  3. FOLIC ACID [Concomitant]
     Indication: VITAMIN SUPPLEMENTATION
     Dosage: 5 Milligram Daily;
     Route: 048
     Dates: start: 20120706
  4. VITAMIN B12 [Concomitant]
     Indication: VITAMIN SUPPLEMENTATION
     Dosage: 1200 Milligram Daily;
     Route: 048
     Dates: start: 20120706
  5. ALLOPURINOL [Concomitant]
     Indication: PROPHYLAXIS
     Dosage: 300 Milligram Daily;
     Route: 048
     Dates: start: 20120706
  6. VORICONAZOLE [Concomitant]
     Indication: ANTIVIRAL PROPHYLAXIS
     Dosage: 800 Milligram Daily;
     Route: 048
  7. SEPTRA [Concomitant]
     Indication: INFECTION PROPHYLAXIS
     Dosage: .8571 Dosage forms Daily; Every Monday, Wednesday, Friday
     Route: 048
     Dates: start: 20120704, end: 20120716
  8. SEPTRA [Concomitant]
     Dosage: 100 ml Daily;
     Route: 042
     Dates: start: 20120716, end: 20120717
  9. SEPTRA [Concomitant]
     Dosage: 160 Milligram Daily;
     Route: 042
     Dates: start: 20120717, end: 20120718
  10. SEPTRA [Concomitant]
     Dosage: .8571 Dosage forms Daily; Every Monday, Wednesday, Friday
     Route: 048
     Dates: start: 20120718
  11. RANITIDINE [Concomitant]
     Indication: DYSPEPSIA
     Dosage: 300 Milligram Daily;
     Route: 048
     Dates: start: 20120704, end: 20120717
  12. ACYCLOVIR [Concomitant]
     Indication: ANTIVIRAL PROPHYLAXIS
     Dosage: 800 Milligram Daily;
     Dates: start: 201011
  13. BUDESONIDE [Concomitant]
     Indication: COUGH
     Dosage: 2 Milligram Daily;
     Route: 048
     Dates: start: 20120703, end: 20120717
  14. RAMIPRIL [Concomitant]
     Indication: HYPERTENSION
     Dosage: 5 Milligram Daily;
     Route: 048
     Dates: start: 201112, end: 20120715
  15. METFORMIN [Concomitant]
     Indication: TYPE 2 DIABETES MELLITUS
     Dosage: 500 Milligram Daily;
     Route: 048
     Dates: start: 2006, end: 20120717
  16. CLAVULIN [Concomitant]
     Indication: INFECTION PROPHYLAXIS
     Dosage: 1500 Milligram Daily;
     Route: 048
  17. CODEINE [Concomitant]
     Indication: COUGH
     Dosage: 15-30 MG every 4 hours as needed
     Route: 048
     Dates: end: 20120717
  18. POTASSIUM [Concomitant]
  19. VITAMIN K [Concomitant]
     Route: 042
     Dates: start: 20120717, end: 20120717
  20. MORPHINE [Concomitant]
     Dates: start: 20120712, end: 20120717
  21. MORPHINE [Concomitant]
     Dosage: 1 mg to 5 mg
     Route: 042
     Dates: start: 20120717
  22. LASIX [Concomitant]
     Route: 042
     Dates: start: 20120716, end: 20120716
  23. FENTANYL [Concomitant]
     Dosage: 25-50 mg
     Route: 042
  24. SLOW-K [Concomitant]
     Dosage: every 4 hours
     Route: 048
     Dates: start: 20120712, end: 20120717
  25. ATROVENT [Concomitant]
     Dosage: 6-8 puffs
     Route: 055
     Dates: start: 20120717
  26. BENADRYL [Concomitant]
     Route: 042
  27. CALCIUM CHLORIDE [Concomitant]
     Route: 042
     Dates: start: 20120718, end: 20120718
  28. GRANULOCYTE COLONY STIMULATING FACTOR [Concomitant]
     Dosage: 480 Microgram Daily;
     Route: 058
     Dates: start: 20120716
  29. HYDROCORTISONE [Concomitant]
     Dosage: 800 Milligram Daily;
     Route: 042
     Dates: end: 20120717
  30. HYDROMORPHONE [Concomitant]
     Dates: start: 20120716, end: 20120717
  31. HYDROMORPHONE [Concomitant]
     Route: 048
     Dates: start: 20120716, end: 20120717
  32. INSULIN [Concomitant]
     Dates: end: 20120717
  33. LEVOFLOXACIN [Concomitant]
  34. MIDAZOLAM [Concomitant]
     Dosage: 1-5 mg
     Route: 042
     Dates: start: 20120717
  35. NOREPINEPHRINE [Concomitant]
     Route: 042
     Dates: start: 20120717
  36. PROPOFOL [Concomitant]
     Route: 042
  37. VANCOMYCIN [Concomitant]
     Dosage: 4500 Milligram Daily;
  38. VASOPRESSIN [Concomitant]
  39. VENTOLIN [Concomitant]
     Dosage: 6-8 puffs
     Route: 055
     Dates: start: 20120717
  40. TAZOCIN [Concomitant]
     Dosage: 13.5 Gram Daily;
     Route: 042
     Dates: start: 20120712

REACTIONS (1)
  - Multi-organ failure [Fatal]
